FAERS Safety Report 8461645-5 (Version None)
Quarter: 2012Q2

REPORT INFORMATION
  Report Type: 
  Country: None (occurrence: None)
  Receive Date: 20120625
  Receipt Date: 20120622
  Transmission Date: 20120825
  Serious: Yes (Life-Threatening, Hospitalization, Disabling)
  Sender: FDA-Public Use
  Company Number: PHHY2010NL78629

PATIENT
  Sex: Female
  Weight: 80 kg

DRUGS (4)
  1. RITALIN [Suspect]
     Indication: ATTENTION DEFICIT/HYPERACTIVITY DISORDER
     Dosage: 10 MG, TID
     Route: 048
     Dates: start: 20100601, end: 20101107
  2. CITALOPRAM HYDROBROMIDE [Concomitant]
     Dosage: 1 DF, QD
     Dates: start: 20101107
  3. CITALOPRAM HYDROBROMIDE [Concomitant]
     Dosage: 1 DF, BID
  4. DESLORATADINE [Concomitant]
     Dosage: 1 DF, QD

REACTIONS (5)
  - COMPLICATION OF PREGNANCY [None]
  - NORMAL NEWBORN [None]
  - THROMBOSIS [None]
  - HAEMORRHAGE [None]
  - MATERNAL EXPOSURE DURING PREGNANCY [None]
